FAERS Safety Report 5313292-1 (Version None)
Quarter: 2007Q2

REPORT INFORMATION
  Report Type: 
  Country: None (occurrence: None)
  Receive Date: 20070501
  Receipt Date: 20070424
  Transmission Date: 20071010
  Serious: Yes (Hospitalization)
  Sender: FDA-Public Use
  Company Number: PHEH2007US06049

PATIENT
  Age: 76 Year
  Sex: Female

DRUGS (11)
  1. ZELNORM [Suspect]
     Indication: GASTROOESOPHAGEAL REFLUX DISEASE
     Dosage: 6 MG, BID
     Dates: end: 20070330
  2. PREVACID [Concomitant]
  3. COUMADIN [Concomitant]
  4. TRAZODONE HCL [Concomitant]
  5. VYTORIN [Concomitant]
  6. SYNTHROID [Concomitant]
  7. AMIODARONE HCL [Concomitant]
  8. PLAVIX [Concomitant]
  9. CYMBALTA [Concomitant]
  10. ALTACE [Concomitant]
  11. VITAMIN CAP [Concomitant]

REACTIONS (5)
  - FALL [None]
  - HIP FRACTURE [None]
  - MYOCARDIAL INFARCTION [None]
  - PELVIC FRACTURE [None]
  - STENT PLACEMENT [None]
